FAERS Safety Report 12542246 (Version 4)
Quarter: 2017Q1

REPORT INFORMATION
  Report Type: Report from Study
  Country: US (occurrence: US)
  Receive Date: 20160708
  Receipt Date: 20170125
  Transmission Date: 20170428
  Serious: Yes (Hospitalization)
  Sender: FDA-Public Use
  Company Number: US-GILEAD-2016-0217427

PATIENT
  Age: 55 Year
  Sex: Female

DRUGS (2)
  1. VITAMIN D                          /00107901/ [Concomitant]
     Active Substance: ERGOCALCIFEROL
     Indication: MYALGIA
     Route: 065
  2. LEDIPASVIR/SOFOSBUVIR [Suspect]
     Active Substance: LEDIPASVIR\SOFOSBUVIR
     Indication: CHRONIC HEPATITIS C
     Dosage: 1 DF, QD
     Route: 048
     Dates: start: 20160602, end: 20160728

REACTIONS (22)
  - Peripheral swelling [Unknown]
  - Joint lock [Unknown]
  - Weight increased [Unknown]
  - Swelling [Unknown]
  - Arthralgia [Unknown]
  - Bone pain [Unknown]
  - Fluid retention [Unknown]
  - Urine output decreased [Unknown]
  - Gait disturbance [Unknown]
  - Pain in extremity [Unknown]
  - Myalgia [Unknown]
  - Polydipsia [Unknown]
  - Pain [Unknown]
  - Hypohidrosis [Unknown]
  - Fall [Unknown]
  - Arthritis [Unknown]
  - Muscle spasms [Unknown]
  - Therapeutic response unexpected [Unknown]
  - Abdominal distension [Unknown]
  - Swelling face [Unknown]
  - Vomiting [Unknown]
  - Unevaluable event [Unknown]
